FAERS Safety Report 6876848-0 (Version None)
Quarter: 2010Q3

REPORT INFORMATION
  Report Type: 
  Country: None (occurrence: None)
  Receive Date: 20100727
  Receipt Date: 20100720
  Transmission Date: 20110219
  Serious: Yes (Death)
  Sender: FDA-Public Use
  Company Number: NL-ROCHE-716665

PATIENT
  Sex: Male

DRUGS (2)
  1. XELODA [Suspect]
     Route: 048
     Dates: start: 20100716
  2. AVASTIN [Concomitant]
     Dosage: DOSE: 25 MG/ML
     Dates: start: 20100716, end: 20100716

REACTIONS (3)
  - ARRHYTHMIA [None]
  - DEATH [None]
  - MYOCARDIAL ISCHAEMIA [None]
